FAERS Safety Report 7088052-4 (Version None)
Quarter: 2010Q4

REPORT INFORMATION
  Report Type: 
  Country: None (occurrence: None)
  Receive Date: 20101108
  Receipt Date: 20101029
  Transmission Date: 20110411
  Serious: Yes (Hospitalization, Other)
  Sender: FDA-Public Use
  Company Number: PHHO2010DE16407

PATIENT
  Sex: Female
  Weight: 70 kg

DRUGS (2)
  1. FTY 720 FTY+ [Suspect]
     Indication: MULTIPLE SCLEROSIS
     Dosage: 0.5MG
     Route: 048
     Dates: start: 20101028, end: 20101028
  2. DROSPIRENONE AND ETHINYL ESTRADIOL [Concomitant]
     Indication: CONTRACEPTION
     Dosage: UNK
     Dates: start: 20100701

REACTIONS (6)
  - CHILLS [None]
  - CIRCULATORY COLLAPSE [None]
  - GASTROINTESTINAL PAIN [None]
  - NAUSEA [None]
  - PYREXIA [None]
  - TREMOR [None]
